FAERS Safety Report 7056423-8 (Version None)
Quarter: 2010Q4

REPORT INFORMATION
  Report Type: 
  Country: None (occurrence: None)
  Receive Date: 20101018
  Receipt Date: 20101008
  Transmission Date: 20110411
  Serious: Yes (Hospitalization)
  Sender: FDA-Public Use
  Company Number: 2010SP054332

PATIENT
  Age: 27 Year
  Sex: Male

DRUGS (6)
  1. MIRTAZAPINE [Suspect]
     Indication: DEPRESSION
     Dosage: 45 MG;QD;PO
     Route: 048
  2. MIRTAZAPINE [Suspect]
     Indication: DEPRESSIVE SYMPTOM
     Dosage: 45 MG;QD;PO
     Route: 048
  3. OLANZAPINE [Concomitant]
  4. QUETIAPINE FUMARATE [Concomitant]
  5. ESTAZOLAM [Concomitant]
  6. MIANSERIN HYDROCHLORIDE [Concomitant]

REACTIONS (1)
  - CEREBRAL INFARCTION [None]
